FAERS Safety Report 14546228 (Version 2)
Quarter: 2018Q1

REPORT INFORMATION
  Report Type: Spontaneous
  Country: US (occurrence: US)
  Receive Date: 20180219
  Receipt Date: 20180219
  Transmission Date: 20180509
  Serious: No
  Sender: FDA-Public Use
  Company Number: US-IPSEN BIOPHARMACEUTICALS, INC.-2017-00854

PATIENT
  Sex: Female

DRUGS (3)
  1. LIZINOPRIL [Concomitant]
  2. DYSPORT [Suspect]
     Active Substance: ABOBOTULINUMTOXINA
     Indication: SKIN WRINKLING
     Dosage: 40 IU
     Route: 030
     Dates: start: 20160921, end: 20160921
  3. DYSPORT [Suspect]
     Active Substance: ABOBOTULINUMTOXINA
     Indication: SKIN WRINKLING
     Dosage: 20 IU
     Route: 065
     Dates: start: 20161019, end: 20161019

REACTIONS (4)
  - Wrong technique in product usage process [Unknown]
  - Drug effect incomplete [Unknown]
  - Product preparation error [Unknown]
  - Inappropriate schedule of drug administration [Unknown]
